FAERS Safety Report 8764928 (Version 1)
Quarter: 2012Q4

REPORT INFORMATION
  Report Type: 
  Country: SE (occurrence: SE)
  Receive Date: 20120902
  Receipt Date: 20120902
  Transmission Date: 20130627
  Serious: Yes (Hospitalization)
  Sender: FDA-Public Use
  Company Number: SE-AMGEN-SWESP2012030773

PATIENT
  Age: 50 Year
  Sex: Male
  Weight: 107 kg

DRUGS (8)
  1. ENBREL [Suspect]
     Indication: PSORIASIS
     Dosage: 50 mg, 2x/week
     Route: 058
     Dates: start: 20120418, end: 2012
  2. ENBREL [Suspect]
     Dosage: 50 mg, weekly
     Route: 058
     Dates: end: 2012
  3. METFORMIN [Concomitant]
     Dosage: 500 mg, 3x/day
  4. TROMBYL [Concomitant]
     Dosage: 75 mg, 1x/day
  5. FURIX [Concomitant]
     Dosage: 20 mg, 1x/day
  6. AMLODIPINE [Concomitant]
     Dosage: 10 mg, 1x/day
  7. ENALAPRIL [Concomitant]
     Dosage: 10 mg, 2x/day
  8. SIMVASTATIN [Concomitant]
     Dosage: 30 mg, 1x/day

REACTIONS (2)
  - Chills [Recovered/Resolved]
  - Injection site bruising [Unknown]
